FAERS Safety Report 5633066-1 (Version None)
Quarter: 2008Q1

REPORT INFORMATION
  Report Type: 
  Country: None (occurrence: None)
  Receive Date: 20080214
  Receipt Date: 20080212
  Transmission Date: 20080703
  Serious: Yes (Hospitalization)
  Sender: FDA-Public Use
  Company Number: 2008SP003144

PATIENT
  Age: 35 Year
  Sex: Female

DRUGS (1)
  1. INTRON A [Suspect]
     Indication: MALIGNANT MELANOMA
     Dosage: 3 MIU;TIW;SC
     Route: 058
     Dates: start: 20070817, end: 20070919

REACTIONS (3)
  - ECZEMA [None]
  - HYPERKERATOSIS [None]
  - PRURITUS [None]
